FAERS Safety Report 18168940 (Version 1)
Quarter: 2020Q3

REPORT INFORMATION
  Report Type: Spontaneous
  Country: US (occurrence: US)
  Receive Date: 20200819
  Receipt Date: 20200819
  Transmission Date: 20201103
  Serious: No
  Sender: FDA-Public Use
  Company Number: US-PFIZER INC-2020320515

PATIENT
  Age: 49 Year
  Sex: Female
  Weight: 121.09 kg

DRUGS (3)
  1. IBRANCE [Suspect]
     Active Substance: PALBOCICLIB
     Dosage: 125 MG, CYCLIC (DAYS 1 TO 21 OF 28 DAY CYCLE)
     Route: 048
     Dates: start: 20200703
  2. HAIR, SKIN + NAIL COMPLEX [Concomitant]
     Dosage: UNK
  3. DAILY VITE [ASCORBIC ACID;CALCIUM PANTOTHENATE;COLECALCIFEROL;CYANOCOB [Concomitant]
     Dosage: UNK

REACTIONS (1)
  - Arthralgia [Unknown]
